FAERS Safety Report 11858933 (Version 8)
Quarter: 2019Q1

REPORT INFORMATION
  Report Type: Report from Study
  Country: US (occurrence: US)
  Receive Date: 20151222
  Receipt Date: 20190216
  Transmission Date: 20190417
  Serious: Yes (Other)
  Sender: FDA-Public Use
  Company Number: US-ROCHE-1681552

PATIENT
  Age: 67 Year
  Sex: Female
  Weight: 67.65 kg

DRUGS (32)
  1. AZELASTINE. [Concomitant]
     Active Substance: AZELASTINE HYDROCHLORIDE
  2. PANTOPRAZOLE [Concomitant]
     Active Substance: PANTOPRAZOLE
  3. CLARINEX [Concomitant]
     Active Substance: DESLORATADINE
     Route: 048
  4. XOPENEX HFA [Concomitant]
     Active Substance: LEVALBUTEROL TARTRATE
     Dosage: 45 MCG/ACT AEROSOL 2 PIFFS 4 TIMES DAILY AS NEEDED
     Route: 065
  5. ESBRIET [Suspect]
     Active Substance: PIRFENIDONE
     Route: 048
     Dates: start: 20150520
  6. VITAMIN D3 [Concomitant]
     Active Substance: CHOLECALCIFEROL
  7. TESSALON [Concomitant]
     Active Substance: BENZONATATE
     Route: 048
     Dates: start: 20150928
  8. LUMIGAN [Concomitant]
     Active Substance: BIMATOPROST
  9. ESBRIET [Suspect]
     Active Substance: PIRFENIDONE
     Indication: IDIOPATHIC PULMONARY FIBROSIS
     Route: 048
     Dates: start: 201504
  10. GABAPENTIN. [Concomitant]
     Active Substance: GABAPENTIN
  11. BUTALBITAL [Concomitant]
     Active Substance: BUTALBITAL
  12. GLIPIZIDE. [Concomitant]
     Active Substance: GLIPIZIDE
  13. AMLODIPINE [Concomitant]
     Active Substance: AMLODIPINE BESYLATE
  14. TYLENOL [Concomitant]
     Active Substance: ACETAMINOPHEN
  15. TEMAZEPAM. [Concomitant]
     Active Substance: TEMAZEPAM
     Dosage: AT BEDTIME
     Route: 048
  16. PROTONIX [Concomitant]
     Active Substance: PANTOPRAZOLE SODIUM
     Dosage: IN MORNING
     Route: 048
  17. SINGULAIR [Concomitant]
     Active Substance: MONTELUKAST SODIUM
     Route: 048
  18. FLONASE [Concomitant]
     Active Substance: FLUTICASONE PROPIONATE
  19. LOSARTAN POTASSIUM. [Concomitant]
     Active Substance: LOSARTAN POTASSIUM
     Route: 048
  20. XALATAN [Concomitant]
     Active Substance: LATANOPROST
  21. DULERA [Concomitant]
     Active Substance: FORMOTEROL FUMARATE DIHYDRATE\MOMETASONE FUROATE
     Dosage: 100 MCG/ACT AEROSOL, 2 INHALATIONS TWO TIMES DAILY
     Route: 065
  22. ESBRIET [Suspect]
     Active Substance: PIRFENIDONE
     Route: 048
     Dates: start: 20150603
  23. BUPROPION. [Concomitant]
     Active Substance: BUPROPION
  24. SYNTHROID [Concomitant]
     Active Substance: LEVOTHYROXINE SODIUM
     Route: 048
  25. PRAVASTATIN SODIUM. [Concomitant]
     Active Substance: PRAVASTATIN SODIUM
     Route: 048
  26. OXYGEN. [Concomitant]
     Active Substance: OXYGEN
     Dosage: 2L/MIN
     Route: 065
  27. DOMPERIDONE [Concomitant]
     Active Substance: DOMPERIDONE
     Dosage: S
     Route: 048
     Dates: start: 20160222
  28. LOSARTAN. [Concomitant]
     Active Substance: LOSARTAN
  29. CHLORTHALIDONE. [Concomitant]
     Active Substance: CHLORTHALIDONE
  30. MONTELUKAST [Concomitant]
     Active Substance: MONTELUKAST SODIUM
  31. DOMPERIDONE [Concomitant]
     Active Substance: DOMPERIDONE
  32. BISOPROLOL FUMARATE. [Concomitant]
     Active Substance: BISOPROLOL FUMARATE

REACTIONS (7)
  - Weight decreased [Unknown]
  - Impaired gastric emptying [Unknown]
  - Decreased appetite [Unknown]
  - Nausea [Recovering/Resolving]
  - Femur fracture [Unknown]
  - Decreased appetite [Recovering/Resolving]
  - Diarrhoea [Unknown]

NARRATIVE: CASE EVENT DATE: 201510
